FAERS Safety Report 13357343 (Version 1)
Quarter: 2017Q1

REPORT INFORMATION
  Report Type: Report from Study
  Country: JP (occurrence: JP)
  Receive Date: 20170322
  Receipt Date: 20170322
  Transmission Date: 20170429
  Serious: Yes (Other)
  Sender: FDA-Public Use
  Company Number: JP-ALXN-A201702637AA

PATIENT
  Age: 2 Year
  Sex: Female

DRUGS (42)
  1. LONGES [Concomitant]
     Active Substance: LISINOPRIL
     Dosage: 0.25 MG, QD
     Route: 048
     Dates: start: 20150927
  2. ALFAROL [Concomitant]
     Active Substance: ALFACALCIDOL
     Dosage: 0.7 ?G, QD
     Route: 048
     Dates: start: 20151007, end: 20151127
  3. ALFAROL [Concomitant]
     Active Substance: ALFACALCIDOL
     Dosage: 1 ?G, QD
     Route: 048
     Dates: start: 20160526, end: 20160803
  4. METHYLPREDNISOLONE. [Concomitant]
     Active Substance: METHYLPREDNISOLONE
     Indication: PROPHYLAXIS
     Dosage: 6 MG, BEFORE SOLIRIS
     Route: 041
     Dates: start: 20130906
  5. KALIUM CHLORID [Concomitant]
     Dosage: 0.2 G, QD
     Route: 048
     Dates: start: 20151019, end: 20151022
  6. INCREMIN [Concomitant]
     Active Substance: FERRIC PYROPHOSPHATE
     Dosage: 2 ML, QD
     Route: 048
     Dates: start: 20151217
  7. GENOTROPIN [Concomitant]
     Active Substance: SOMATROPIN
     Indication: HAEMOLYTIC URAEMIC SYNDROME
     Dosage: 0.6 MG, 5 TIMES/WEEK
     Route: 058
     Dates: start: 20150805, end: 20150924
  8. GENOTROPIN [Concomitant]
     Active Substance: SOMATROPIN
     Dosage: 0.7 MG, 6 TIMES/WEEK
     Route: 058
     Dates: start: 20150925, end: 20151223
  9. BAKTAR [Concomitant]
     Active Substance: SULFAMETHOXAZOLE\TRIMETHOPRIM
     Dosage: 1.2 MG, QD
     Route: 048
     Dates: start: 20160820, end: 20160918
  10. ALFAROL [Concomitant]
     Active Substance: ALFACALCIDOL
     Dosage: 0.3 ?G, QD
     Route: 048
     Dates: start: 20160317, end: 20160414
  11. INCREMIN [Concomitant]
     Active Substance: FERRIC PYROPHOSPHATE
     Dosage: 3 ML, QD
     Route: 048
     Dates: start: 20151114, end: 20151216
  12. LAC-B [Concomitant]
     Active Substance: BIFIDOBACTERIUM SPP.
     Indication: HAEMOLYTIC URAEMIC SYNDROME
     Dosage: 0.5 G, TID
     Route: 048
     Dates: start: 20140115, end: 20151110
  13. GENOTROPIN [Concomitant]
     Active Substance: SOMATROPIN
     Dosage: 0.8 MG, 6 TIMES/WEEK
     Route: 058
     Dates: start: 20151224, end: 20160814
  14. LONGES [Concomitant]
     Active Substance: LISINOPRIL
     Indication: HAEMOLYTIC URAEMIC SYNDROME
     Dosage: 0.5 MG, QD
     Route: 048
     Dates: start: 20150522, end: 20150926
  15. ALFAROL [Concomitant]
     Active Substance: ALFACALCIDOL
     Dosage: 0.8 ?G, QD
     Route: 048
     Dates: start: 20150917, end: 20151006
  16. ALFAROL [Concomitant]
     Active Substance: ALFACALCIDOL
     Dosage: 0.5 ?G, QD
     Route: 048
     Dates: start: 20151128, end: 20151214
  17. ALFAROL [Concomitant]
     Active Substance: ALFACALCIDOL
     Dosage: 1.2 ?G, QD
     Route: 048
     Dates: start: 20160804
  18. GENOTROPIN [Concomitant]
     Active Substance: SOMATROPIN
     Dosage: 0.9 MG, 6 TIMES/WEEK
     Route: 058
     Dates: start: 20160815
  19. NESP [Concomitant]
     Active Substance: DARBEPOETIN ALFA
     Dosage: 60 ?G, Q2W
     Route: 058
     Dates: start: 20151016
  20. PHOSRIBBON [Concomitant]
     Indication: HAEMOLYTIC URAEMIC SYNDROME
     Dosage: 40 MG, TID
     Route: 048
     Dates: start: 20150908, end: 20151211
  21. BAKTAR [Concomitant]
     Active Substance: SULFAMETHOXAZOLE\TRIMETHOPRIM
     Indication: HAEMOLYTIC URAEMIC SYNDROME
     Dosage: 1 MG, QD
     Route: 048
     Dates: start: 20160419, end: 20160510
  22. SOLIRIS [Suspect]
     Active Substance: ECULIZUMAB
     Dosage: 300 MG, Q3W
     Route: 042
     Dates: start: 20131022, end: 20140114
  23. VALPROATE [Concomitant]
     Active Substance: VALPROIC ACID
     Dosage: 33.3 MG, TID
     Route: 048
     Dates: start: 20151217
  24. ALFAROL [Concomitant]
     Active Substance: ALFACALCIDOL
     Dosage: 0.1 ?G, QD
     Route: 048
     Dates: start: 20160218, end: 20160316
  25. KALIUM CHLORID [Concomitant]
     Dosage: 0.4 G, QD
     Route: 048
     Dates: start: 20151023, end: 20151114
  26. SOLIRIS [Suspect]
     Active Substance: ECULIZUMAB
     Dosage: 300 MG, QW
     Route: 042
     Dates: start: 20130905, end: 20130913
  27. ALFAROL [Concomitant]
     Active Substance: ALFACALCIDOL
     Indication: HAEMOLYTIC URAEMIC SYNDROME
     Dosage: 1 ?G, QD
     Route: 048
     Dates: start: 20150718, end: 20150916
  28. ALFAROL [Concomitant]
     Active Substance: ALFACALCIDOL
     Dosage: 0.3 ?G, QD
     Route: 048
     Dates: start: 20151215, end: 20160120
  29. KALIUM CHLORID [Concomitant]
     Indication: HAEMOLYTIC URAEMIC SYNDROME
     Dosage: 0.4 G, QD
     Route: 048
     Dates: start: 20150305, end: 20151013
  30. KALIUM CHLORID [Concomitant]
     Dosage: 0.6 G, QD
     Route: 048
     Dates: start: 20151115, end: 20160820
  31. KALIUM CHLORID [Concomitant]
     Dosage: 0.8 G, QD
     Route: 048
     Dates: start: 20160821
  32. ATARAX-P [Concomitant]
     Active Substance: HYDROXYZINE HYDROCHLORIDE
     Indication: PROPHYLAXIS
     Dosage: 2 MG, BEFORE SOLIRIS
     Route: 041
     Dates: start: 20130913
  33. SOLIRIS [Suspect]
     Active Substance: ECULIZUMAB
     Indication: HAEMOLYTIC URAEMIC SYNDROME
     Dosage: 150 MG, SINGLE
     Route: 042
     Dates: start: 20130830, end: 20130830
  34. SOLIRIS [Suspect]
     Active Substance: ECULIZUMAB
     Dosage: 160 MG, SINGLE
     Route: 042
     Dates: start: 20131004, end: 20131004
  35. WASSER V [Concomitant]
     Indication: HAEMOLYTIC URAEMIC SYNDROME
     Dosage: 0.07 G, QD
     Route: 048
     Dates: start: 20131024
  36. ALFAROL [Concomitant]
     Active Substance: ALFACALCIDOL
     Dosage: 0.2 ?G, QD
     Route: 048
     Dates: start: 20160121, end: 20160217
  37. ALFAROL [Concomitant]
     Active Substance: ALFACALCIDOL
     Dosage: 0.6 ?G, QD
     Route: 048
     Dates: start: 20160415, end: 20160525
  38. INCREMIN [Concomitant]
     Active Substance: FERRIC PYROPHOSPHATE
     Indication: HAEMOLYTIC URAEMIC SYNDROME
     Dosage: 2 ML, BID
     Route: 048
     Dates: start: 20150811, end: 20151114
  39. LAC-B [Concomitant]
     Active Substance: BIFIDOBACTERIUM SPP.
     Dosage: 0.5 G, TID
     Route: 048
     Dates: start: 20151211
  40. NESP [Concomitant]
     Active Substance: DARBEPOETIN ALFA
     Indication: HAEMOLYTIC URAEMIC SYNDROME
     Dosage: 120 ?G, Q2W
     Route: 058
     Dates: start: 20150323, end: 20151015
  41. SOLIRIS [Suspect]
     Active Substance: ECULIZUMAB
     Dosage: 300 MG, Q2W
     Route: 042
     Dates: start: 20150904
  42. VALPROATE [Concomitant]
     Active Substance: VALPROIC ACID
     Indication: EPILEPSY
     Dosage: 30 MG, TID
     Route: 048
     Dates: start: 20150412, end: 20151216

REACTIONS (3)
  - Device related infection [Recovering/Resolving]
  - Device related infection [Recovering/Resolving]
  - Device related infection [Recovering/Resolving]

NARRATIVE: CASE EVENT DATE: 20150917
